FAERS Safety Report 5514300-5 (Version None)
Quarter: 2007Q4

REPORT INFORMATION
  Report Type: 
  Country: None (occurrence: None)
  Receive Date: 20071113
  Receipt Date: 20070605
  Transmission Date: 20080405
  Serious: Yes (Life-Threatening, Hospitalization, Other)
  Sender: FDA-Public Use
  Company Number: US-MERCK-0705USA04388

PATIENT
  Age: 76 Year
  Sex: Male
  Weight: 78 kg

DRUGS (9)
  1. ZETIA [Suspect]
     Indication: HYPERCHOLESTEROLAEMIA
     Route: 048
     Dates: start: 20070409, end: 20070424
  2. ZOCOR [Suspect]
     Route: 048
     Dates: end: 20070401
  3. LOPID [Suspect]
     Route: 048
     Dates: end: 20070401
  4. AMIODARONE [Suspect]
     Route: 048
  5. LASIX [Concomitant]
     Route: 065
  6. [THERAPY UNSPECIFIED] [Concomitant]
     Route: 065
  7. ZESTRIL [Concomitant]
     Route: 065
  8. PLAVIX [Concomitant]
     Route: 048
  9. ATENOLOL [Concomitant]
     Route: 048

REACTIONS (2)
  - RENAL FAILURE ACUTE [None]
  - RHABDOMYOLYSIS [None]
